FAERS Safety Report 6024372-X (Version None)
Quarter: 2008Q4

REPORT INFORMATION
  Report Type: 
  Country: None (occurrence: None)
  Receive Date: 20081231
  Receipt Date: 20081223
  Transmission Date: 20090506
  Serious: Yes (Other)
  Sender: FDA-Public Use
  Company Number: US-JNJFOC-20081105038

PATIENT
  Sex: Female
  Weight: 100.25 kg

DRUGS (9)
  1. REMICADE [Suspect]
     Route: 042
  2. REMICADE [Suspect]
     Indication: RHEUMATOID ARTHRITIS
     Route: 042
  3. COUMADIN [Concomitant]
  4. NORVASC [Concomitant]
  5. FOLIC ACID [Concomitant]
  6. DIOVAN [Concomitant]
  7. ELAVIL [Concomitant]
  8. SYNTHROID [Concomitant]
  9. ACTONEL [Concomitant]

REACTIONS (1)
  - ATRIAL FIBRILLATION [None]
